FAERS Safety Report 21951650 (Version 2)
Quarter: 2023Q1

REPORT INFORMATION
  Report Type: Spontaneous
  Country: FR (occurrence: None)
  Receive Date: 20230203
  Receipt Date: 20230216
  Transmission Date: 20230418
  Serious: Yes (Hospitalization)
  Sender: FDA-Public Use
  Company Number: 2023A027916

PATIENT
  Age: 75 Year
  Sex: Female

DRUGS (17)
  1. OMEPRAZOLE [Suspect]
     Active Substance: OMEPRAZOLE
     Indication: Gastrooesophageal reflux disease
     Route: 048
  2. LISINOPRIL [Suspect]
     Active Substance: LISINOPRIL
     Indication: Product used for unknown indication
     Route: 048
  3. SERTRALINE HYDROCHLORIDE [Suspect]
     Active Substance: SERTRALINE HYDROCHLORIDE
     Indication: Depression
     Dosage: 25 MG FOR 5 DAYS THEN 50 MG FOR 6 DAYS
     Route: 048
     Dates: start: 20220930, end: 20221011
  4. LANTUS [Concomitant]
     Active Substance: INSULIN GLARGINE
     Indication: Type 1 diabetes mellitus
     Dosage: 20 UNITS IN THE EVENING
     Route: 058
  5. PRAVASTATIN [Concomitant]
     Active Substance: PRAVASTATIN
     Dosage: 1 DF IN THE EVENING
     Route: 048
  6. ANAFRANIL [Concomitant]
     Active Substance: CLOMIPRAMINE HYDROCHLORIDE
     Dosage: WEANED OFF AT THE BEGINING OF HOSPITALISATION
     Route: 048
  7. MIRTAZAPINE [Concomitant]
     Active Substance: MIRTAZAPINE
     Route: 048
     Dates: start: 20221016
  8. ASPIRIN [Concomitant]
     Active Substance: ASPIRIN
     Dosage: 1 SACHET
     Route: 048
  9. ALPRAZOLAM [Concomitant]
     Active Substance: ALPRAZOLAM
     Dosage: 1 SACHET
     Route: 048
  10. BUMETANIDE [Concomitant]
     Active Substance: BUMETANIDE
     Route: 048
  11. LISINOPRIL [Concomitant]
     Active Substance: LISINOPRIL
     Route: 048
  12. LORAZEPAM [Concomitant]
     Active Substance: LORAZEPAM
     Dosage: 1 DF IN THE EVENING
     Route: 048
  13. PROPRANOLOL [Concomitant]
     Active Substance: PROPRANOLOL HYDROCHLORIDE
     Route: 048
  14. LEVOTHYROXINE [Concomitant]
     Active Substance: LEVOTHYROXINE
     Route: 048
  15. AMIODARONE [Concomitant]
     Active Substance: AMIODARONE
     Dosage: HALF TABLET : 3 HALF TABLETS PER WEEK
     Route: 048
  16. MORPHINE [Concomitant]
     Active Substance: MORPHINE
     Dosage: 2 TABLETS IN INTERDOSE
     Route: 048
  17. MORPHINE [Concomitant]
     Active Substance: MORPHINE
     Route: 048

REACTIONS (4)
  - Delusional disorder, persecutory type [Recovered/Resolved]
  - Hyponatraemia [Recovered/Resolved]
  - Confusional state [Recovered/Resolved]
  - Hallucination, visual [Recovered/Resolved]

NARRATIVE: CASE EVENT DATE: 20221004
